FAERS Safety Report 8381605-2 (Version None)
Quarter: 2012Q2

REPORT INFORMATION
  Report Type: 
  Country: None (occurrence: None)
  Receive Date: 20120524
  Receipt Date: 20120510
  Transmission Date: 20120825
  Serious: Yes (Hospitalization)
  Sender: FDA-Public Use
  Company Number: CA-BAXTER-2012BAX004917

PATIENT
  Age: 61 Year
  Sex: Male

DRUGS (3)
  1. DIANEAL PD101 CAPD SOLUTION WITH 4.25% DEXTROSE [Suspect]
     Route: 033
     Dates: start: 20100527
  2. DIANEAL PD101 CAPD SOLUTION WITH 2.5% DEXTROSE [Suspect]
     Route: 033
     Dates: start: 20100527
  3. EXTRANEAL [Suspect]
     Route: 033
     Dates: start: 20100527

REACTIONS (1)
  - FUNGAL PERITONITIS [None]
